FAERS Safety Report 4958333-6 (Version None)
Quarter: 2006Q1

REPORT INFORMATION
  Report Type: 
  Country: None (occurrence: None)
  Receive Date: 20060329
  Receipt Date: 20060329
  Transmission Date: 20060701
  Serious: No
  Sender: FDA-Public Use
  Company Number: None

PATIENT
  Age: 50 Year
  Sex: Female
  Weight: 58.9676 kg

DRUGS (2)
  1. BIODINE [Suspect]
     Indication: OOPHORECTOMY
     Dosage: LIQUID ONCE TOP
     Route: 061
     Dates: start: 20060222, end: 20060222
  2. BIODINE [Suspect]
     Indication: PREOPERATIVE CARE
     Dosage: LIQUID ONCE TOP
     Route: 061
     Dates: start: 20060222, end: 20060222

REACTIONS (5)
  - APPLICATION SITE DERMATITIS [None]
  - DERMATITIS CONTACT [None]
  - ECZEMA [None]
  - PAIN [None]
  - PSORIASIS [None]
